FAERS Safety Report 7535009-2 (Version None)
Quarter: 2011Q2

REPORT INFORMATION
  Report Type: 
  Country: None (occurrence: None)
  Receive Date: 20110609
  Receipt Date: 20110602
  Transmission Date: 20111010
  Serious: No
  Sender: FDA-Public Use
  Company Number: US-BIOGENIDEC-2011BI006392

PATIENT
  Sex: Male

DRUGS (1)
  1. TYSABRI [Suspect]
     Indication: MULTIPLE SCLEROSIS
     Route: 042
     Dates: start: 20110215, end: 20110412

REACTIONS (17)
  - CHEST DISCOMFORT [None]
  - DYSARTHRIA [None]
  - CENTRAL NERVOUS SYSTEM LESION [None]
  - HEADACHE [None]
  - CHEST PAIN [None]
  - FATIGUE [None]
  - MIGRAINE [None]
  - DIZZINESS [None]
  - PHOTOPSIA [None]
  - APHASIA [None]
  - EYE PAIN [None]
  - MOOD SWINGS [None]
  - DRY MOUTH [None]
  - AMNESIA [None]
  - NAUSEA [None]
  - PAIN IN EXTREMITY [None]
  - BACK PAIN [None]
